FAERS Safety Report 21973454 (Version 1)
Quarter: 2023Q1

REPORT INFORMATION
  Report Type: Spontaneous
  Country: None (occurrence: GB)
  Receive Date: 20230209
  Receipt Date: 20230209
  Transmission Date: 20230417
  Serious: Yes (Life-Threatening, Other)
  Sender: FDA-Public Use
  Company Number: GB-Breckenridge Pharmaceutical, Inc.-2137717

PATIENT
  Sex: Female

DRUGS (11)
  1. OMEPRAZOLE [Suspect]
     Active Substance: OMEPRAZOLE
     Route: 048
  2. AMITRIPTYLINE HYDROCHLORIDE [Concomitant]
     Active Substance: AMITRIPTYLINE HYDROCHLORIDE
  3. BISACODYL [Concomitant]
     Active Substance: BISACODYL
  4. CLONAZEPAM [Concomitant]
     Active Substance: CLONAZEPAM
  5. LAMOTRIGINE [Concomitant]
     Active Substance: LAMOTRIGINE
  6. METFORMIN [Concomitant]
     Active Substance: METFORMIN HYDROCHLORIDE
  7. PHENYTOIN [Concomitant]
     Active Substance: PHENYTOIN
  8. LANSOPRAZOLE [Concomitant]
     Active Substance: LANSOPRAZOLE
  9. TAPENTADOL [Concomitant]
     Active Substance: TAPENTADOL
  10. CO-CODAMOL (CODEINE PHOSPHATE; PARACETAMOL) [Concomitant]
  11. TAGRISSO [Suspect]
     Active Substance: OSIMERTINIB

REACTIONS (2)
  - Malignant neoplasm progression [Unknown]
  - Blood alkaline phosphatase abnormal [Unknown]
